FAERS Safety Report 22335818 (Version 1)
Quarter: 2023Q2

REPORT INFORMATION
  Report Type: Spontaneous
  Country: DE (occurrence: DE)
  Receive Date: 20230518
  Receipt Date: 20230518
  Transmission Date: 20230721
  Serious: Yes (Hospitalization)
  Sender: FDA-Public Use
  Company Number: DE-009507513-1703DEU003660

PATIENT
  Age: 38 Year
  Sex: Female

DRUGS (4)
  1. FOLLITROPIN BETA [Suspect]
     Active Substance: FOLLITROPIN BETA
     Indication: In vitro fertilisation
     Dosage: 200 IU IN THE EVENING, STRENGTH 900 IU
     Dates: start: 20170303, end: 20170303
  2. ENOXAPARIN SODIUM [Concomitant]
     Active Substance: ENOXAPARIN SODIUM
     Indication: Postoperative thrombosis
     Dosage: CLEXANE 40, 1X, S.C.
     Route: 058
     Dates: start: 20170303, end: 20170307
  3. FOLIC ACID [Concomitant]
     Active Substance: FOLIC ACID
     Dosage: 1 X, LONG-TERM MEDICATION
  4. LEVOTHYROXINE [Concomitant]
     Active Substance: LEVOTHYROXINE
     Indication: Hypothyroidism
     Dosage: L-THYROXINE 75, 1 X, LONG-TERM MEDICATION
     Route: 048

REACTIONS (5)
  - Vomiting [Recovered/Resolved with Sequelae]
  - Diarrhoea [Recovered/Resolved]
  - Headache [Recovered/Resolved with Sequelae]
  - Abdominal pain lower [Recovered/Resolved]
  - Nausea [Recovered/Resolved with Sequelae]

NARRATIVE: CASE EVENT DATE: 20170304
